FAERS Safety Report 23110916 (Version 1)
Quarter: 2023Q4

REPORT INFORMATION
  Report Type: Report from Study
  Country: FR (occurrence: FR)
  Receive Date: 20231026
  Receipt Date: 20231026
  Transmission Date: 20240110
  Serious: Yes (Other)
  Sender: FDA-Public Use
  Company Number: FR-JAZZ PHARMACEUTICALS-2021-FR-018380

PATIENT

DRUGS (2)
  1. DEFITELIO [Suspect]
     Active Substance: DEFIBROTIDE SODIUM
     Indication: Prophylaxis
     Dosage: UNKNOWN DOSE FOR PROPHYLAXIS
     Dates: start: 2019, end: 2019
  2. DEFITELIO [Suspect]
     Active Substance: DEFIBROTIDE SODIUM
     Indication: Venoocclusive disease
     Dosage: UNKNOWN DOSE FOR VOD TREATMENT
     Dates: start: 20190321, end: 20190321

REACTIONS (2)
  - Venoocclusive disease [Unknown]
  - Off label use [Unknown]

NARRATIVE: CASE EVENT DATE: 20190101
